FAERS Safety Report 19076769 (Version 1)
Quarter: 2021Q1

REPORT INFORMATION
  Report Type: Report from Study
  Country: BE (occurrence: BE)
  Receive Date: 20210331
  Receipt Date: 20210331
  Transmission Date: 20210420
  Serious: Yes (Other)
  Sender: FDA-Public Use
  Company Number: NVSC2021BE059734

PATIENT
  Age: 61 Year
  Sex: Female

DRUGS (2)
  1. BAF312 [Suspect]
     Active Substance: SIPONIMOD
     Indication: MULTIPLE SCLEROSIS
     Dosage: 2 MG, QD
     Route: 048
     Dates: start: 20200602
  2. BAF312 [Suspect]
     Active Substance: SIPONIMOD
     Indication: SECONDARY PROGRESSIVE MULTIPLE SCLEROSIS

REACTIONS (5)
  - Cystitis [Unknown]
  - Multiple sclerosis relapse [Recovered/Resolved]
  - Hemiparesis [Unknown]
  - Central nervous system lesion [Unknown]
  - Paraesthesia [Unknown]

NARRATIVE: CASE EVENT DATE: 202011
